FAERS Safety Report 5616377-5 (Version None)
Quarter: 2008Q1

REPORT INFORMATION
  Report Type: 
  Country: None (occurrence: None)
  Receive Date: 20080205
  Receipt Date: 20080205
  Transmission Date: 20080703
  Serious: No
  Sender: FDA-Public Use
  Company Number: None

PATIENT
  Sex: Female
  Weight: 58.9676 kg

DRUGS (2)
  1. CHANTIX [Suspect]
     Indication: SMOKING CESSATION THERAPY
     Dosage: .5 2 PER DAY MOUTH
     Route: 048
     Dates: start: 20080105, end: 20080116
  2. CHANTIX [Suspect]
     Dosage: 1.0 2 PER DAY MOUTH
     Route: 048

REACTIONS (3)
  - DEPRESSION [None]
  - MORBID THOUGHTS [None]
  - SUICIDAL IDEATION [None]
